FAERS Safety Report 12528175 (Version 2)
Quarter: 2016Q3

REPORT INFORMATION
  Report Type: Spontaneous
  Country: US (occurrence: US)
  Receive Date: 20160705
  Receipt Date: 20160801
  Transmission Date: 20161109
  Serious: Yes (Other)
  Sender: FDA-Public Use
  Company Number: US-TAKEDA-2016TUS011305

PATIENT
  Sex: Female
  Weight: 75.74 kg

DRUGS (3)
  1. CONTRAVE [Suspect]
     Active Substance: BUPROPION HYDROCHLORIDE\NALTREXONE HYDROCHLORIDE
     Dosage: 8/90 MG, UNK
     Route: 048
     Dates: end: 201606
  2. CONTRAVE [Suspect]
     Active Substance: BUPROPION HYDROCHLORIDE\NALTREXONE HYDROCHLORIDE
     Dosage: 8/90 MG, QID
     Route: 048
     Dates: start: 201604
  3. CONTRAVE [Suspect]
     Active Substance: BUPROPION HYDROCHLORIDE\NALTREXONE HYDROCHLORIDE
     Indication: OVERWEIGHT
     Dosage: 8/90 MG, BID
     Route: 048
     Dates: start: 201604, end: 201604

REACTIONS (8)
  - Syncope [Recovered/Resolved]
  - Drug ineffective [Unknown]
  - Vision blurred [Recovered/Resolved]
  - Eye pain [Recovered/Resolved]
  - Dizziness [Recovered/Resolved]
  - Drug prescribing error [Recovered/Resolved]
  - Inappropriate schedule of drug administration [Recovered/Resolved]
  - Headache [Recovered/Resolved]
